FAERS Safety Report 25753229 (Version 1)
Quarter: 2025Q3

REPORT INFORMATION
  Report Type: Spontaneous
  Country: US (occurrence: US)
  Receive Date: 20250903
  Receipt Date: 20250903
  Transmission Date: 20251021
  Serious: No
  Sender: STRIDES
  Company Number: US-STRIDES ARCOLAB LIMITED-2025SP005489

PATIENT

DRUGS (1)
  1. MEGESTROL ACETATE [Suspect]
     Active Substance: MEGESTROL ACETATE
     Indication: Product used for unknown indication
     Route: 048
     Dates: start: 20250328

REACTIONS (5)
  - Somnolence [Recovered/Resolved]
  - Malaise [Recovered/Resolved]
  - Product taste abnormal [Unknown]
  - Product odour abnormal [Unknown]
  - Liquid product physical issue [Unknown]

NARRATIVE: CASE EVENT DATE: 20250331
